FAERS Safety Report 8102140-2 (Version None)
Quarter: 2012Q1

REPORT INFORMATION
  Report Type: 
  Country: None (occurrence: None)
  Receive Date: 20120201
  Receipt Date: 20120126
  Transmission Date: 20120608
  Serious: Yes (Hospitalization)
  Sender: FDA-Public Use
  Company Number: US-BRISTOL-MYERS SQUIBB COMPANY-16347908

PATIENT
  Age: 38 Year
  Sex: Female

DRUGS (8)
  1. NORFLEX [Concomitant]
  2. CELEBREX [Concomitant]
     Dosage: IN MRNG
  3. LEXAPRO [Concomitant]
  4. ZOLPIDEM [Concomitant]
     Dosage: AT NYT
  5. ABILIFY [Suspect]
     Dosage: 2MG DAILY FOR 2 DAYS THEN 5MG
     Route: 048
  6. TRAMADOL HCL [Concomitant]
     Dosage: PILL
  7. TOPAMAX [Concomitant]
     Dosage: A SUPPER TIME 20MG
  8. CLONAZEPAM [Concomitant]
     Dosage: 1DF-0.5 UNITS NT SPECIFIED AT NYT

REACTIONS (8)
  - WITHDRAWAL SYNDROME [None]
  - HYPERSENSITIVITY [None]
  - URINARY RETENTION [None]
  - TREMOR [None]
  - AGITATION [None]
  - RESTLESSNESS [None]
  - LETHARGY [None]
  - INJURY [None]
